FAERS Safety Report 8006782-4 (Version None)
Quarter: 2011Q4

REPORT INFORMATION
  Report Type: 
  Country: None (occurrence: None)
  Receive Date: 20111227
  Receipt Date: 20111219
  Transmission Date: 20120403
  Serious: Yes (Other)
  Sender: FDA-Public Use
  Company Number: US-BAYER-2011-112976

PATIENT
  Age: 64 Year
  Sex: Female

DRUGS (7)
  1. ADVAIR DISKUS 100/50 [Concomitant]
     Route: 055
  2. NEXAVAR [Suspect]
     Dosage: 200 MG EVERY A.M.
     Dates: start: 20111201
  3. AVASTIN [Concomitant]
     Route: 042
  4. PAZOPANIB [Concomitant]
  5. SUTENT [Concomitant]
     Route: 048
  6. TEMSIROLIMUS [Concomitant]
     Route: 042
  7. NEXAVAR [Suspect]
     Indication: RENAL CELL CARCINOMA
     Dosage: 400 MG EVERY A.M.
     Route: 048
     Dates: start: 20111104, end: 20111128

REACTIONS (7)
  - URINARY TRACT INFECTION [None]
  - THROAT TIGHTNESS [None]
  - DYSPHONIA [None]
  - OROPHARYNGEAL BLISTERING [None]
  - GLOSSODYNIA [None]
  - TONGUE DISCOLOURATION [None]
  - SWOLLEN TONGUE [None]
